FAERS Safety Report 17013908 (Version 1)
Quarter: 2019Q4

REPORT INFORMATION
  Report Type: Spontaneous
  Country: GB (occurrence: GB)
  Receive Date: 20191111
  Receipt Date: 20191111
  Transmission Date: 20200122
  Serious: Yes (Hospitalization, Other)
  Sender: FDA-Public Use
  Company Number: GB-AUROBINDO-AUR-APL-2019-071308

PATIENT
  Age: 8 Month
  Sex: Female
  Weight: 9 kg

DRUGS (2)
  1. CLEMIZOLE PENICILLIN [Concomitant]
     Active Substance: CLEMIZOLE PENICILLIN
     Indication: PRODUCT USED FOR UNKNOWN INDICATION
     Dosage: UNK
     Route: 065
  2. CO-AMOXICLAV [Suspect]
     Active Substance: AMOXICILLIN\CLAVULANATE POTASSIUM
     Indication: RESPIRATORY TRACT INFECTION
     Dosage: 7.5 MILLILITER, ONCE A DAY
     Route: 048
     Dates: start: 20171222

REACTIONS (4)
  - Swelling face [Unknown]
  - Peripheral swelling [Unknown]
  - Eye swelling [Unknown]
  - Rash macular [Not Recovered/Not Resolved]

NARRATIVE: CASE EVENT DATE: 20171229
